FAERS Safety Report 14474209 (Version 1)
Quarter: 2018Q1

REPORT INFORMATION
  Report Type: Spontaneous
  Country: US (occurrence: US)
  Receive Date: 20180131
  Receipt Date: 20180131
  Transmission Date: 20180509
  Serious: No
  Sender: FDA-Public Use
  Company Number: None

PATIENT
  Sex: Female
  Weight: 72.12 kg

DRUGS (1)
  1. FORTEO [Suspect]
     Active Substance: TERIPARATIDE
     Indication: OSTEOPOROSIS
     Route: 058
     Dates: start: 201607

REACTIONS (7)
  - Injection site swelling [None]
  - Peripheral coldness [None]
  - Injection site pruritus [None]
  - Injection site rash [None]
  - Injection site erythema [None]
  - Injection site bruising [None]
  - Injection site pain [None]
